FAERS Safety Report 15302544 (Version 1)
Quarter: 2018Q3

REPORT INFORMATION
  Report Type: Report from Study
  Country: US (occurrence: US)
  Receive Date: 20180821
  Receipt Date: 20180821
  Transmission Date: 20181010
  Serious: No
  Sender: FDA-Public Use
  Company Number: PHEH2018US033914

PATIENT
  Sex: Female

DRUGS (1)
  1. COSENTYX [Suspect]
     Active Substance: SECUKINUMAB
     Indication: PSORIASIS
     Route: 058

REACTIONS (6)
  - Foot and mouth disease [Unknown]
  - Malaise [Unknown]
  - Hyperhidrosis [Unknown]
  - Psoriasis [Unknown]
  - Hot flush [Unknown]
  - Fatigue [Unknown]
